FAERS Safety Report 12644612 (Version 1)
Quarter: 2016Q3

REPORT INFORMATION
  Report Type: Spontaneous
  Country: US (occurrence: US)
  Receive Date: 20160811
  Receipt Date: 20160811
  Transmission Date: 20161109
  Serious: No
  Sender: FDA-Public Use
  Company Number: ALCN2012US001461

PATIENT
  Sex: Female

DRUGS (1)
  1. ICAPS LUTEIN/ZEAXANTHIN FORMULA [Suspect]
     Active Substance: LUTEIN\MINERALS\VITAMINS\ZINC
     Route: 048

REACTIONS (4)
  - Malaise [Recovered/Resolved]
  - Product odour abnormal [None]
  - Dysgeusia [Recovered/Resolved]
  - Product taste abnormal [None]

NARRATIVE: CASE EVENT DATE: 20120306
